FAERS Safety Report 17289882 (Version 1)
Quarter: 2020Q1

REPORT INFORMATION
  Report Type: Spontaneous
  Country: US (occurrence: US)
  Receive Date: 20200120
  Receipt Date: 20200120
  Transmission Date: 20200409
  Serious: No
  Sender: FDA-Public Use
  Company Number: US-GE HEALTHCARE LIFE SCIENCES-2019CSU002849

PATIENT
  Sex: Female

DRUGS (12)
  1. OMNISCAN [Suspect]
     Active Substance: GADODIAMIDE
     Dosage: UNK, SINGLE
     Route: 065
     Dates: start: 20150805, end: 20150805
  2. OMNISCAN [Suspect]
     Active Substance: GADODIAMIDE
     Dosage: UNK, SINGLE
     Route: 065
     Dates: start: 20140106, end: 20140106
  3. OMNISCAN [Suspect]
     Active Substance: GADODIAMIDE
     Indication: MAGNETIC RESONANCE IMAGING
     Dosage: UNK UNK, SINGLE
     Route: 065
     Dates: start: 20101006, end: 20101006
  4. OMNISCAN [Suspect]
     Active Substance: GADODIAMIDE
     Indication: PRODUCT USED FOR UNKNOWN INDICATION
     Dosage: UNK, SINGLE
     Route: 065
     Dates: start: 20110824, end: 20110824
  5. OMNISCAN [Suspect]
     Active Substance: GADODIAMIDE
     Dosage: UNK, SINGLE
     Route: 065
     Dates: start: 20130121, end: 20130121
  6. OMNISCAN [Suspect]
     Active Substance: GADODIAMIDE
     Dosage: UNK, SINGLE
     Route: 065
     Dates: start: 20140625, end: 20140625
  7. OMNISCAN [Suspect]
     Active Substance: GADODIAMIDE
     Dosage: UNK, SINGLE
     Route: 065
     Dates: start: 20160627, end: 20160627
  8. OMNISCAN [Suspect]
     Active Substance: GADODIAMIDE
     Dosage: UNK, SINGLE
     Route: 065
     Dates: start: 20170731, end: 20170731
  9. OMNISCAN [Suspect]
     Active Substance: GADODIAMIDE
     Dosage: UNK, SINGLE
     Route: 065
     Dates: start: 20141021, end: 20141021
  10. OMNISCAN [Suspect]
     Active Substance: GADODIAMIDE
     Indication: ANGIOGRAM
     Dosage: UNK, SINGLE
     Route: 065
     Dates: start: 20110504, end: 20110504
  11. OMNISCAN [Suspect]
     Active Substance: GADODIAMIDE
     Dosage: UNK, SINGLE
     Route: 065
     Dates: start: 20120629, end: 20120629
  12. OMNISCAN [Suspect]
     Active Substance: GADODIAMIDE
     Dosage: UNK, SINGLE
     Route: 065
     Dates: start: 20130513, end: 20130513

REACTIONS (1)
  - Urine analysis abnormal [Unknown]

NARRATIVE: CASE EVENT DATE: 20181019
